FAERS Safety Report 5358611-5 (Version None)
Quarter: 2007Q2

REPORT INFORMATION
  Report Type: 
  Country: None (occurrence: None)
  Receive Date: 20070614
  Receipt Date: 20070614
  Transmission Date: 20071010
  Serious: Yes (Life-Threatening)
  Sender: FDA-Public Use
  Company Number: None

PATIENT
  Age: 38 Year
  Sex: Female

DRUGS (1)
  1. AMOXICILLIN + CLAVULANATE POTASSIUM [Suspect]
     Indication: SINUSITIS
     Dosage: ONE TABLET BID PO
     Route: 048
     Dates: start: 20070120, end: 20070215

REACTIONS (3)
  - ADVERSE DRUG REACTION [None]
  - EOSINOPHILIA [None]
  - HEPATITIS [None]
